FAERS Safety Report 6237454-4 (Version None)
Quarter: 2009Q2

REPORT INFORMATION
  Report Type: 
  Country: None (occurrence: None)
  Receive Date: 20090619
  Receipt Date: 20090610
  Transmission Date: 20091009
  Serious: Yes (Other)
  Sender: FDA-Public Use
  Company Number: PHHY2009GB23810

PATIENT

DRUGS (1)
  1. CARBAMAZEPINE [Suspect]
     Dosage: 200 MG, BID

REACTIONS (1)
  - DYSPHAGIA [None]
